FAERS Safety Report 7261890-0 (Version None)
Quarter: 2011Q1

REPORT INFORMATION
  Report Type: 
  Country: None (occurrence: None)
  Receive Date: 20110130
  Receipt Date: 20101210
  Transmission Date: 20110831
  Serious: No
  Sender: FDA-Public Use
  Company Number: US-ABBOTT-10P-163-0691072-00

PATIENT
  Sex: Female
  Weight: 46.308 kg

DRUGS (2)
  1. HUMIRA [Suspect]
     Indication: RHEUMATOID ARTHRITIS
     Dates: start: 20060101, end: 20101001
  2. GLUCOPHAGE [Concomitant]
     Indication: DIABETES MELLITUS

REACTIONS (4)
  - FALL [None]
  - PAIN [None]
  - SPINAL FRACTURE [None]
  - WEIGHT DECREASED [None]
